FAERS Safety Report 5375610-8 (Version None)
Quarter: 2007Q2

REPORT INFORMATION
  Report Type: 
  Country: None (occurrence: None)
  Receive Date: 20070629
  Receipt Date: 20070621
  Transmission Date: 20071010
  Serious: Yes (Life-Threatening, Hospitalization)
  Sender: FDA-Public Use
  Company Number: US-MERCK-0706USA04343

PATIENT
  Age: 17 Year
  Sex: Male

DRUGS (5)
  1. DECADRON [Suspect]
     Route: 048
  2. PEGASPARGASE [Suspect]
     Indication: ACUTE LYMPHOCYTIC LEUKAEMIA
     Route: 065
  3. VINCRISTINE SULFATE [Suspect]
     Indication: ACUTE LYMPHOCYTIC LEUKAEMIA
     Route: 065
  4. DOXORUBICIN [Suspect]
     Indication: ACUTE LYMPHOCYTIC LEUKAEMIA
     Route: 065
  5. RANITIDINE [Suspect]
     Indication: PROPHYLAXIS
     Route: 065

REACTIONS (4)
  - BACTERIAL SEPSIS [None]
  - DIVERTICULAR PERFORATION [None]
  - GASTRITIS [None]
  - MUCOSAL INFLAMMATION [None]
